FAERS Safety Report 4401265-2 (Version None)
Quarter: 2004Q3

REPORT INFORMATION
  Report Type: 
  Country: None (occurrence: None)
  Receive Date: 20040907
  Receipt Date: 20040127
  Transmission Date: 20050211
  Serious: No
  Sender: FDA-Public Use
  Company Number: US-BRISTOL-MYERS SQUIBB COMPANY-12488615

PATIENT
  Age: 45 Year
  Sex: Male

DRUGS (7)
  1. COUMADIN [Suspect]
     Indication: THROMBOSIS
     Dates: start: 20030101
  2. HEPARIN [Suspect]
     Indication: THROMBOSIS
     Dates: start: 20030101
  3. DURAGESIC [Concomitant]
  4. NEURONTIN [Concomitant]
  5. ROXICODONE [Concomitant]
  6. REMERON [Concomitant]
  7. LEXAPRO [Concomitant]

REACTIONS (1)
  - DRUG INEFFECTIVE [None]
